FAERS Safety Report 8318445 (Version 2)
Quarter: 2014Q1

REPORT INFORMATION
  Report Type: Report from Study
  Country: KR (occurrence: KR)
  Receive Date: 20120103
  Receipt Date: 20140226
  Transmission Date: 20141002
  Serious: Yes (Hospitalization)
  Sender: FDA-Public Use
  Company Number: KR-JNJFOC-20111209092

PATIENT
  Age: 14 Year
  Sex: Male
  Weight: 50.9 kg

DRUGS (3)
  1. REMICADE [Suspect]
     Indication: CROHN^S DISEASE
     Dosage: FREQ: 1
     Route: 042
     Dates: start: 20111216, end: 20111216
  2. AZATHIOPRIN [Concomitant]
     Indication: CROHN^S DISEASE
     Dosage: FREQ: 1
     Route: 048
     Dates: start: 20110812
  3. PENTASA [Concomitant]
     Indication: CROHN^S DISEASE
     Dosage: FREQ: 2
     Route: 048
     Dates: start: 20110812

REACTIONS (1)
  - Small intestinal stenosis [Recovered/Resolved]
